FAERS Safety Report 9854093 (Version 2)
Quarter: 2014Q2

REPORT INFORMATION
  Report Type: Spontaneous
  Country: SE (occurrence: SE)
  Receive Date: 20140129
  Receipt Date: 20140421
  Transmission Date: 20141212
  Serious: Yes (Life-Threatening, Disabling, Other)
  Sender: FDA-Public Use
  Company Number: SE-ABBVIE-14P-150-1196186-00

PATIENT
  Sex: Male

DRUGS (1)
  1. VALPROATE SODIUM [Suspect]
     Indication: PRODUCT USED FOR UNKNOWN INDICATION
     Route: 048
     Dates: end: 20140109

REACTIONS (8)
  - Disturbance in social behaviour [Not Recovered/Not Resolved]
  - Restlessness [Not Recovered/Not Resolved]
  - Appetite disorder [Not Recovered/Not Resolved]
  - Apathy [Not Recovered/Not Resolved]
  - Depressive symptom [Not Recovered/Not Resolved]
  - Aggression [Not Recovered/Not Resolved]
  - Affect lability [Not Recovered/Not Resolved]
  - Product substitution issue [Not Recovered/Not Resolved]
